FAERS Safety Report 7528494-3 (Version None)
Quarter: 2011Q2

REPORT INFORMATION
  Report Type: 
  Country: None (occurrence: None)
  Receive Date: 20110607
  Receipt Date: 20110127
  Transmission Date: 20111010
  Serious: No
  Sender: FDA-Public Use
  Company Number: US-ASTRAZENECA-2011SE08196

PATIENT
  Age: 68 Year
  Sex: Female

DRUGS (5)
  1. PRILOSEC OTC [Suspect]
     Route: 048
     Dates: start: 20110127, end: 20110127
  2. TOPROL-XL [Concomitant]
     Indication: HYPERTENSION
  3. XANAX [Concomitant]
  4. COLON HEALTH PRODUCT [Concomitant]
  5. PRILOSEC OTC [Suspect]
     Route: 048
     Dates: start: 20110126, end: 20110126

REACTIONS (4)
  - NERVOUSNESS [None]
  - WRONG TECHNIQUE IN DRUG USAGE PROCESS [None]
  - UNDERDOSE [None]
  - FEELING JITTERY [None]
